FAERS Safety Report 11180238 (Version 1)
Quarter: 2015Q2

REPORT INFORMATION
  Report Type: Spontaneous
  Country: US (occurrence: US)
  Receive Date: 20150611
  Receipt Date: 20150611
  Transmission Date: 20150821
  Serious: Yes (Other)
  Sender: FDA-Public Use
  Company Number: US-JNJFOC-20150602831

PATIENT
  Sex: Female

DRUGS (1)
  1. ORTHO EVRA [Suspect]
     Active Substance: ETHINYL ESTRADIOL\NORELGESTROMIN
     Indication: POLYCYSTIC OVARIES
     Route: 062

REACTIONS (4)
  - Condition aggravated [Not Recovered/Not Resolved]
  - Surgery [Unknown]
  - Product use issue [Unknown]
  - Therapeutic response unexpected [Unknown]
